FAERS Safety Report 5956873-4 (Version None)
Quarter: 2008Q4

REPORT INFORMATION
  Report Type: 
  Country: None (occurrence: None)
  Receive Date: 20081118
  Receipt Date: 20081106
  Transmission Date: 20090506
  Serious: Yes (Life-Threatening, Hospitalization)
  Sender: FDA-Public Use
  Company Number: US-JNJFOC-20081004390

PATIENT
  Sex: Female
  Weight: 71.67 kg

DRUGS (1)
  1. TYLENOL W/ CODEINE [Suspect]
     Indication: INTENTIONAL DRUG MISUSE
     Route: 048

REACTIONS (4)
  - BLOOD SODIUM DECREASED [None]
  - INTENTIONAL DRUG MISUSE [None]
  - LOSS OF CONSCIOUSNESS [None]
  - OVERDOSE [None]
